FAERS Safety Report 20222852 (Version 1)
Quarter: 2021Q4

REPORT INFORMATION
  Report Type: Spontaneous
  Country: BE (occurrence: BE)
  Receive Date: 20211223
  Receipt Date: 20211223
  Transmission Date: 20220303
  Serious: Yes (Life-Threatening, Other)
  Sender: FDA-Public Use
  Company Number: BE-BBM-BE-BBM-202101411

PATIENT
  Age: 73 Year
  Sex: Female

DRUGS (4)
  1. ONDANSETRON HYDROCHLORIDE [Suspect]
     Active Substance: ONDANSETRON HYDROCHLORIDE
     Indication: Product used for unknown indication
     Dosage: UNK
  2. ROCURONIUM BROMIDE [Suspect]
     Active Substance: ROCURONIUM BROMIDE
     Indication: Surgery
     Dosage: UNK
     Route: 042
  3. SUFENTANIL [Concomitant]
     Active Substance: SUFENTANIL
     Dosage: UNK
  4. PROPOFOL [Concomitant]
     Active Substance: PROPOFOL
     Dosage: UNK

REACTIONS (1)
  - Cardiac arrest [Unknown]

NARRATIVE: CASE EVENT DATE: 20211005
